FAERS Safety Report 15351570 (Version 1)
Quarter: 2018Q3

REPORT INFORMATION
  Report Type: Report from Study
  Country: US (occurrence: US)
  Receive Date: 20180905
  Receipt Date: 20180905
  Transmission Date: 20181010
  Serious: Yes (Other)
  Sender: FDA-Public Use
  Company Number: US-AMGEN-USASL2018120511

PATIENT
  Sex: Female

DRUGS (1)
  1. ENBREL [Suspect]
     Active Substance: ETANERCEPT
     Indication: PSORIASIS
     Dosage: UNK UNK, 2 TIMES/WK
     Route: 065

REACTIONS (6)
  - Upper limb fracture [Unknown]
  - Injection site pruritus [Recovered/Resolved]
  - Fall [Unknown]
  - Injection site urticaria [Recovered/Resolved]
  - Drug effect incomplete [Unknown]
  - Injection site erythema [Recovered/Resolved]
